FAERS Safety Report 5955860-X (Version None)
Quarter: 2008Q4

REPORT INFORMATION
  Report Type: 
  Country: None (occurrence: None)
  Receive Date: 20081113
  Receipt Date: 20081102
  Transmission Date: 20090506
  Serious: Yes (Other)
  Sender: FDA-Public Use
  Company Number: 1-16816621/MED-08206

PATIENT
  Age: 65 Year
  Sex: Male

DRUGS (13)
  1. CILOSTAZOL [Suspect]
     Indication: ARTERIOSCLEROSIS OBLITERANS
     Dosage: 10 MG, ORAL
     Route: 048
     Dates: start: 20061101, end: 20070701
  2. GLYCYRRHIZIN [Suspect]
     Indication: LIVER INJURY
     Dosage: 150 MG DAILY, ORAL
     Route: 048
     Dates: end: 20070601
  3. IMIDAPRIL [Concomitant]
  4. OLMESARTAN MEDOXOMIL [Concomitant]
  5. AROTINOLOL [Concomitant]
  6. PRAZOSINE [Concomitant]
  7. NIFEDIPINE [Concomitant]
  8. FAMOTIDINE [Concomitant]
  9. DIAZEPAM [Concomitant]
  10. SIMVASTATIN [Concomitant]
  11. ALINAMIN F [Concomitant]
  12. VITAMEDINE [Concomitant]
  13. PROHEPARUM [Concomitant]

REACTIONS (7)
  - BLOOD PRESSURE INCREASED [None]
  - CARDIAC MURMUR [None]
  - DRUG INTERACTION [None]
  - HYPOKALAEMIA [None]
  - PALPITATIONS [None]
  - PSEUDOALDOSTERONISM [None]
  - TACHYCARDIA [None]
